FAERS Safety Report 7520720-X (Version None)
Quarter: 2011Q2

REPORT INFORMATION
  Report Type: 
  Country: None (occurrence: None)
  Receive Date: 20110603
  Receipt Date: 20101124
  Transmission Date: 20111010
  Serious: Yes (Other)
  Sender: FDA-Public Use
  Company Number: NL-BAYER-200912374GPV

PATIENT
  Age: 62 Year
  Sex: Male

DRUGS (7)
  1. ENALAPRIL MALEATE [Concomitant]
     Indication: BLOOD PRESSURE INCREASED
     Dosage: 20 MG, QD
     Route: 065
     Dates: end: 20081029
  2. ENALAPRIL MALEATE [Concomitant]
     Dosage: 20 MG, BID
     Route: 048
     Dates: start: 20081030
  3. NEXAVAR [Suspect]
     Dosage: 200 MG, UNK
  4. NEXAVAR [Suspect]
     Indication: HEPATIC CANCER METASTATIC
     Dosage: 400 MG, BID
     Route: 048
     Dates: start: 20081007, end: 20090129
  5. NEXAVAR [Suspect]
     Dosage: 600 MG, BID
     Route: 048
     Dates: end: 20100615
  6. NEXAVAR [Suspect]
     Dosage: 200 MG, BID
     Route: 048
     Dates: start: 20090129, end: 20090206
  7. NEXAVAR [Suspect]
     Route: 048
     Dates: start: 20090201

REACTIONS (9)
  - LETHARGY [None]
  - FATIGUE [None]
  - RASH [None]
  - BLOOD PRESSURE INCREASED [None]
  - SLUGGISHNESS [None]
  - DIARRHOEA [None]
  - ADRENAL CARCINOMA [None]
  - ADRENAL DISORDER [None]
  - HEPATIC CANCER METASTATIC [None]
